FAERS Safety Report 14790489 (Version 2)
Quarter: 2018Q2

REPORT INFORMATION
  Report Type: Report from Study
  Country: CO (occurrence: CO)
  Receive Date: 20180423
  Receipt Date: 20180427
  Transmission Date: 20180711
  Serious: Yes (Death, Hospitalization)
  Sender: FDA-Public Use
  Company Number: CO-JNJFOC-20180413812

PATIENT
  Age: 83 Year
  Sex: Male
  Weight: 70 kg

DRUGS (1)
  1. DARZALEX [Suspect]
     Active Substance: DARATUMUMAB
     Indication: PLASMA CELL MYELOMA
     Route: 042
     Dates: start: 20171118, end: 20180421

REACTIONS (6)
  - Thrombocytopenia [Unknown]
  - Death [Fatal]
  - Anaemia [Unknown]
  - Disorientation [Unknown]
  - Haemorrhage [Unknown]
  - Ecchymosis [Unknown]

NARRATIVE: CASE EVENT DATE: 20180404
